FAERS Safety Report 8043163-1 (Version None)
Quarter: 2011Q4

REPORT INFORMATION
  Report Type: 
  Country: None (occurrence: None)
  Receive Date: 20111202
  Receipt Date: 20101018
  Transmission Date: 20120403
  Serious: Yes (Hospitalization)
  Sender: FDA-Public Use
  Company Number: 2010SP055703

PATIENT
  Age: 18 Year
  Sex: Female

DRUGS (1)
  1. NUVARING [Suspect]
     Indication: PREMENSTRUAL SYNDROME
     Dosage: ;VAG
     Route: 067
     Dates: start: 20100601, end: 20101009

REACTIONS (1)
  - MIGRAINE [None]
